FAERS Safety Report 6966041-5 (Version None)
Quarter: 2010Q3

REPORT INFORMATION
  Report Type: 
  Country: None (occurrence: None)
  Receive Date: 20100903
  Receipt Date: 20100513
  Transmission Date: 20110219
  Serious: No
  Sender: FDA-Public Use
  Company Number: A0859578A

PATIENT
  Sex: Female

DRUGS (5)
  1. WELLBUTRIN [Suspect]
     Indication: DEPRESSION
  2. LAMICTAL [Suspect]
     Indication: DEPRESSION
     Dosage: 100MG PER DAY
     Route: 048
  3. NEURONTIN [Concomitant]
  4. TRAZODONE HCL [Concomitant]
  5. ATIVAN [Concomitant]

REACTIONS (3)
  - ACNE [None]
  - DEPRESSION [None]
  - DRUG INEFFECTIVE [None]
